FAERS Safety Report 5051624-2 (Version None)
Quarter: 2006Q3

REPORT INFORMATION
  Report Type: 
  Country: None (occurrence: None)
  Receive Date: 20060714
  Receipt Date: 20060711
  Transmission Date: 20061208
  Serious: Yes (Other)
  Sender: FDA-Public Use
  Company Number: US-GLAXOSMITHKLINE-A0611893A

PATIENT
  Age: 32 Year
  Sex: Female

DRUGS (2)
  1. LAMIVUDINE [Suspect]
     Indication: HIV INFECTION
     Route: 048
     Dates: start: 20060509
  2. NELFINAVIR [Concomitant]
     Indication: HIV INFECTION
     Dosage: 1250MG PER DAY
     Route: 048
     Dates: start: 20060509

REACTIONS (3)
  - ABORTION SPONTANEOUS [None]
  - CHORIOAMNIONITIS [None]
  - FUNISITIS [None]
